FAERS Safety Report 12590867 (Version 1)
Quarter: 2016Q3

REPORT INFORMATION
  Report Type: Spontaneous
  Country: US (occurrence: US)
  Receive Date: 20160726
  Receipt Date: 20160726
  Transmission Date: 20161109
  Serious: No
  Sender: FDA-Public Use
  Company Number: US-UNITED THERAPEUTICS-UNT-2016-006002

PATIENT
  Age: 69 Year
  Sex: Female
  Weight: 79.37 kg

DRUGS (3)
  1. ORENITRAM [Suspect]
     Active Substance: TREPROSTINIL
     Dosage: 2.5 MG, Q8H
     Route: 048
  2. SILDENAFIL. [Suspect]
     Active Substance: SILDENAFIL
     Indication: PRODUCT USED FOR UNKNOWN INDICATION
  3. ORENITRAM [Suspect]
     Active Substance: TREPROSTINIL
     Indication: PULMONARY ARTERIAL HYPERTENSION
     Dosage: 5 MG, TID
     Route: 048
     Dates: start: 20160105

REACTIONS (4)
  - Gastrooesophageal reflux disease [Unknown]
  - Diarrhoea [Unknown]
  - Dyspepsia [Unknown]
  - Flushing [Unknown]

NARRATIVE: CASE EVENT DATE: 201604
